FAERS Safety Report 9745303 (Version 2)
Quarter: 2013Q4

REPORT INFORMATION
  Report Type: Spontaneous
  Country: DE (occurrence: DE)
  Receive Date: 20131211
  Receipt Date: 20131220
  Transmission Date: 20140711
  Serious: Yes (Hospitalization)
  Sender: FDA-Public Use
  Company Number: DE-ELI_LILLY_AND_COMPANY-DE201312001205

PATIENT
  Age: 63 Year
  Sex: Female

DRUGS (7)
  1. YENTREVE [Suspect]
     Indication: STRESS URINARY INCONTINENCE
     Dosage: 40 MG, QD
     Route: 048
     Dates: start: 20130822, end: 20130825
  2. THYROXIN [Concomitant]
     Dosage: 100 UG, QD
  3. AMLODIPIN                          /00972401/ [Concomitant]
     Dosage: 5 MG, UNKNOWN
  4. HCT [Concomitant]
     Dosage: 12.5 MG, UNKNOWN
  5. RAMIPRIL [Concomitant]
     Dosage: 2.5 MG, QD
  6. IDEOS [Concomitant]
     Dosage: UNK, BID
  7. PANTOZOL                           /02692601/ [Concomitant]
     Dosage: 40 DF, QD

REACTIONS (1)
  - Hypersensitivity vasculitis [Recovering/Resolving]
